FAERS Safety Report 17049609 (Version 8)
Quarter: 2020Q4

REPORT INFORMATION
  Report Type: Spontaneous
  Country: CN (occurrence: CN)
  Receive Date: 20191119
  Receipt Date: 20201124
  Transmission Date: 20210113
  Serious: Yes (Hospitalization)
  Sender: FDA-Public Use
  Company Number: CN-CELGENEUS-CHN-20191104769

PATIENT
  Age: 67 Year
  Sex: Male
  Weight: 58 kg

DRUGS (39)
  1. ABRAXANE [Suspect]
     Active Substance: PACLITAXEL
     Route: 041
     Dates: start: 20191115
  2. CARBOPLATIN. [Suspect]
     Active Substance: CARBOPLATIN
     Route: 041
     Dates: start: 20191115
  3. RECOMBINANT HUMAN GRANULOCYTE STIMULATING FACTOR [Concomitant]
     Indication: MYELOSUPPRESSION
     Route: 058
     Dates: start: 20191107, end: 20191107
  4. RECOMBINANT HUMAN GRANULOCYTE STIMULATING FACTOR [Concomitant]
     Route: 058
     Dates: start: 20191030, end: 20191030
  5. RECOMBINANT HUMAN GRANULOCYTE STIMULATING FACTOR [Concomitant]
     Route: 058
     Dates: start: 20191031, end: 20191031
  6. SODIUM CHLORIDE. [Concomitant]
     Active Substance: SODIUM CHLORIDE
     Route: 041
     Dates: start: 20191024
  7. GLUTATHIONE [Concomitant]
     Active Substance: GLUTATHIONE
     Indication: PROPHYLAXIS
     Route: 041
     Dates: start: 20201115
  8. SODIUM CHLORIDE. [Concomitant]
     Active Substance: SODIUM CHLORIDE
     Route: 041
     Dates: start: 20191102
  9. SODIUM CHLORIDE. [Concomitant]
     Active Substance: SODIUM CHLORIDE
     Route: 041
     Dates: start: 20191101
  10. WEIDI [Concomitant]
     Route: 065
     Dates: start: 20191102
  11. ABRAXANE [Suspect]
     Active Substance: PACLITAXEL
     Route: 041
     Dates: start: 20191102
  12. SERPLULIMAB. [Suspect]
     Active Substance: SERPLULIMAB
     Indication: NON-SMALL CELL LUNG CANCER
     Dosage: 261 MILLIGRAM
     Route: 041
     Dates: start: 20191017, end: 20191017
  13. SODIUM CHLORIDE. [Concomitant]
     Active Substance: SODIUM CHLORIDE
     Route: 041
     Dates: start: 20191024
  14. SODIUM CHLORIDE. [Concomitant]
     Active Substance: SODIUM CHLORIDE
     Route: 041
     Dates: start: 20191101
  15. SAI GE EN [Concomitant]
     Indication: PROPHYLAXIS
     Route: 065
     Dates: start: 20191024
  16. TROPISETRON HYDROCHLORIDE [Concomitant]
     Active Substance: TROPISETRON HYDROCHLORIDE
     Indication: PROPHYLAXIS OF NAUSEA AND VOMITING
     Dosage: 5 MILLIGRAM
     Route: 041
     Dates: start: 20191115, end: 20191116
  17. ABRAXANE [Suspect]
     Active Substance: PACLITAXEL
     Dosage: ADD INTO THE 250 ML OF SALT WATER
     Route: 041
     Dates: start: 20191101
  18. RECOMBINANT HUMAN GRANULOCYTE STIMULATING FACTOR [Concomitant]
     Route: 058
     Dates: start: 20191111, end: 20191111
  19. SODIUM CHLORIDE. [Concomitant]
     Active Substance: SODIUM CHLORIDE
     Route: 041
     Dates: start: 20191101
  20. SODIUM CHLORIDE. [Concomitant]
     Active Substance: SODIUM CHLORIDE
     Route: 041
     Dates: start: 20191101
  21. SODIUM CHLORIDE. [Concomitant]
     Active Substance: SODIUM CHLORIDE
     Route: 041
     Dates: start: 20191102
  22. WEIDI [Concomitant]
     Route: 065
     Dates: start: 20191101
  23. RECOMBINANT HUMAN GRANULOCYTE STIMULATING FACTOR [Concomitant]
     Route: 058
     Dates: start: 20191112, end: 20191112
  24. SODIUM CHLORIDE. [Concomitant]
     Active Substance: SODIUM CHLORIDE
     Route: 041
     Dates: start: 20191024
  25. SAI GE EN [Concomitant]
     Route: 065
     Dates: start: 20191101
  26. SAI GE EN [Concomitant]
     Route: 065
     Dates: start: 20191102
  27. ABRAXANE [Suspect]
     Active Substance: PACLITAXEL
     Dosage: ADD INTO THE 250 ML OF SALT WATER
     Route: 041
     Dates: start: 20191024
  28. SERPLULIMAB. [Suspect]
     Active Substance: SERPLULIMAB
     Route: 041
     Dates: start: 20191115
  29. CARBOPLATIN. [Suspect]
     Active Substance: CARBOPLATIN
     Indication: NON-SMALL CELL LUNG CANCER
     Dosage: AUC 5
     Route: 041
     Dates: start: 20191017, end: 20191017
  30. WEIDI [Concomitant]
     Indication: PROPHYLAXIS
     Route: 065
     Dates: start: 20191024
  31. DIACETYLACETIC ACID ETHYLENEDIAMINE [Concomitant]
     Indication: PRODUCT USED FOR UNKNOWN INDICATION
     Route: 065
     Dates: start: 20191101
  32. DIACETYLACETIC ACID ETHYLENEDIAMINE [Concomitant]
     Route: 065
     Dates: start: 20191031
  33. ABRAXANE [Suspect]
     Active Substance: PACLITAXEL
     Indication: NON-SMALL CELL LUNG CANCER
     Dosage: 100 MILLIGRAM/SQ. METER
     Route: 041
     Dates: start: 20191017, end: 20191017
  34. RECOMBINANT HUMAN GRANULOCYTE STIMULATING FACTOR [Concomitant]
     Indication: PRODUCT USED FOR UNKNOWN INDICATION
     Route: 058
     Dates: start: 20191106, end: 20191106
  35. SODIUM CHLORIDE. [Concomitant]
     Active Substance: SODIUM CHLORIDE
     Indication: PRODUCT USED FOR UNKNOWN INDICATION
     Route: 041
     Dates: start: 20191024
  36. SODIUM CHLORIDE. [Concomitant]
     Active Substance: SODIUM CHLORIDE
     Route: 041
     Dates: start: 20191101
  37. SODIUM CHLORIDE. [Concomitant]
     Active Substance: SODIUM CHLORIDE
     Route: 041
     Dates: start: 20191102
  38. DIACETYLACETIC ACID ETHYLENEDIAMINE [Concomitant]
     Route: 065
     Dates: start: 20191102
  39. PANTOPRAZOLE SODIUM. [Concomitant]
     Active Substance: PANTOPRAZOLE SODIUM
     Indication: PROPHYLAXIS
     Dosage: 80 MILLIGRAM
     Route: 041
     Dates: start: 20191115, end: 20191116

REACTIONS (2)
  - White blood cell count decreased [Recovered/Resolved]
  - Neutrophil count decreased [Recovered/Resolved]

NARRATIVE: CASE EVENT DATE: 20191030
